FAERS Safety Report 5228679-5 (Version None)
Quarter: 2007Q1

REPORT INFORMATION
  Report Type: 
  Country: None (occurrence: None)
  Receive Date: 20070205
  Receipt Date: 20070125
  Transmission Date: 20070707
  Serious: Yes (Hospitalization)
  Sender: FDA-Public Use
  Company Number: FR-GLAXOSMITHKLINE-B0455657A

PATIENT
  Age: 65 Year
  Sex: Male
  Weight: 100 kg

DRUGS (2)
  1. ALKERAN [Suspect]
     Dosage: 1TAB ALTERNATE DAYS
     Route: 048
     Dates: start: 20060601
  2. THALIDOMIDE [Suspect]
     Dosage: 50MG SEE DOSAGE TEXT
     Route: 048
     Dates: start: 20060601

REACTIONS (1)
  - NEUROPATHY [None]
